FAERS Safety Report 14681874 (Version 2)
Quarter: 2021Q4

REPORT INFORMATION
  Report Type: Report from Study
  Country: US (occurrence: US)
  Receive Date: 20180326
  Receipt Date: 20211021
  Transmission Date: 20220303
  Serious: Yes (Other)
  Sender: FDA-Public Use
  Company Number: US-SHIRE-US201808376

PATIENT
  Sex: Female

DRUGS (5)
  1. ICATIBANT ACETATE [Suspect]
     Active Substance: ICATIBANT ACETATE
     Indication: Product used for unknown indication
     Dosage: UNK
     Route: 065
  2. ICATIBANT ACETATE [Suspect]
     Active Substance: ICATIBANT ACETATE
     Indication: Product used for unknown indication
     Dosage: UNK
     Route: 065
  3. ICATIBANT ACETATE [Suspect]
     Active Substance: ICATIBANT ACETATE
     Dosage: 30 MILLIGRAM, PRN
     Route: 058
  4. ICATIBANT ACETATE [Suspect]
     Active Substance: ICATIBANT ACETATE
     Dosage: 30 MILLIGRAM, PRN
     Route: 058
  5. CIMZIA [Concomitant]
     Active Substance: CERTOLIZUMAB PEGOL
     Indication: Rheumatoid arthritis
     Route: 065

REACTIONS (11)
  - Pneumonia [Unknown]
  - Immunosuppression [Unknown]
  - Bronchitis [Not Recovered/Not Resolved]
  - White blood cell count increased [Unknown]
  - Ear infection [Unknown]
  - Tympanic membrane perforation [Unknown]
  - Pain [Unknown]
  - Eustachian tube dysfunction [Unknown]
  - Fall [Unknown]
  - Hereditary angioedema [Unknown]
  - Pyrexia [Unknown]
